FAERS Safety Report 14133851 (Version 2)
Quarter: 2017Q4

REPORT INFORMATION
  Report Type: Spontaneous
  Country: US (occurrence: US)
  Receive Date: 20171027
  Receipt Date: 20171129
  Transmission Date: 20180321
  Serious: No
  Sender: FDA-Public Use
  Company Number: US-PFIZER INC-2017463871

PATIENT
  Age: 41 Year
  Sex: Male

DRUGS (1)
  1. XELJANZ XR [Suspect]
     Active Substance: TOFACITINIB CITRATE
     Dosage: 11 MG, UNK

REACTIONS (6)
  - Blood cholesterol increased [Unknown]
  - Influenza like illness [Recovered/Resolved]
  - Hypertension [Unknown]
  - Tinnitus [Unknown]
  - Headache [Unknown]
  - Blood pressure increased [Unknown]
